FAERS Safety Report 4273267-0 (Version None)
Quarter: 2004Q1

REPORT INFORMATION
  Report Type: 
  Country: None (occurrence: None)
  Receive Date: 20040116
  Receipt Date: 20031211
  Transmission Date: 20041129
  Serious: Yes (Life-Threatening, Hospitalization, Other)
  Sender: FDA-Public Use
  Company Number: WAES 0312USA01301

PATIENT
  Age: 65 Year
  Sex: Male
  Weight: 100 kg

DRUGS (18)
  1. ASCORBIC ACID [Concomitant]
  2. CHONDROITIN SULFATE SODIUM AND GLUCOSAMINE HYDROCHLORIDE [Concomitant]
  3. CARDURA [Concomitant]
     Indication: HYPERTENSION
     Dates: end: 20010801
  4. DOXYCYCLINE [Concomitant]
     Indication: ROSACEA
  5. TRICOR [Concomitant]
     Indication: HYPERLIPIDAEMIA
  6. ALLEGRA [Concomitant]
     Indication: RHINITIS ALLERGIC
  7. PROSCAR [Concomitant]
     Indication: BENIGN PROSTATIC HYPERPLASIA
     Route: 048
  8. FOLIC ACID [Concomitant]
  9. MAXZIDE [Concomitant]
     Indication: HYPERTENSION
  10. PREVACID [Concomitant]
     Indication: GASTROOESOPHAGEAL REFLUX DISEASE
  11. LISINOPRIL [Concomitant]
     Indication: HYPERTENSION
  12. FLOMAX [Concomitant]
     Indication: BENIGN PROSTATIC HYPERPLASIA
  13. PYRIDOXINE [Concomitant]
  14. VIOXX [Suspect]
     Indication: SPINAL COLUMN STENOSIS
     Route: 048
     Dates: start: 19980901
  15. VIOXX [Suspect]
     Indication: ARTHRITIS
     Route: 048
     Dates: start: 19980901
  16. THIAMINE [Concomitant]
  17. VITAMIN E [Concomitant]
  18. ZINC (UNSPECIFIED) [Concomitant]

REACTIONS (4)
  - ARTHROPATHY [None]
  - CEREBROVASCULAR ACCIDENT [None]
  - DEEP VEIN THROMBOSIS [None]
  - LABYRINTHITIS [None]
